FAERS Safety Report 17763290 (Version 2)
Quarter: 2020Q2

REPORT INFORMATION
  Report Type: Spontaneous
  Country: GB (occurrence: GB)
  Receive Date: 20200509
  Receipt Date: 20200617
  Transmission Date: 20200714
  Serious: Yes (Hospitalization, Other)
  Sender: FDA-Public Use
  Company Number: GB-ABBVIE-20K-167-3398498-00

PATIENT
  Age: 59 Year
  Sex: Female

DRUGS (1)
  1. VENETOCLAX. [Suspect]
     Active Substance: VENETOCLAX
     Indication: PRODUCT USED FOR UNKNOWN INDICATION
     Route: 048
     Dates: start: 20170213

REACTIONS (2)
  - Allogenic stem cell transplantation [Recovering/Resolving]
  - Acute graft versus host disease [Recovering/Resolving]

NARRATIVE: CASE EVENT DATE: 20170213
